FAERS Safety Report 15611111 (Version 1)
Quarter: 2018Q4

REPORT INFORMATION
  Report Type: Spontaneous
  Country: US (occurrence: US)
  Receive Date: 20181113
  Receipt Date: 20181113
  Transmission Date: 20190205
  Serious: Yes (Other)
  Sender: FDA-Public Use
  Company Number: US-ROCHE-2175219

PATIENT
  Age: 86 Year
  Sex: Female
  Weight: 52.21 kg

DRUGS (1)
  1. LUCENTIS [Suspect]
     Active Substance: RANIBIZUMAB
     Indication: MACULAR DEGENERATION
     Route: 065
     Dates: start: 201805

REACTIONS (6)
  - Cerebrovascular accident [Not Recovered/Not Resolved]
  - Memory impairment [Unknown]
  - Dysgraphia [Unknown]
  - Foreign body sensation in eyes [Unknown]
  - Pain [Unknown]
  - Visual impairment [Not Recovered/Not Resolved]

NARRATIVE: CASE EVENT DATE: 201805
